FAERS Safety Report 18209855 (Version 1)
Quarter: 2020Q3

REPORT INFORMATION
  Report Type: Spontaneous
  Country: US (occurrence: US)
  Receive Date: 20200828
  Receipt Date: 20200828
  Transmission Date: 20201103
  Serious: No
  Sender: FDA-Public Use
  Company Number: US-VERTEX PHARMACEUTICALS-2020-017291

PATIENT

DRUGS (1)
  1. TRIKAFTA [Suspect]
     Active Substance: ELEXACAFTOR\IVACAFTOR\TEZACAFTOR
     Indication: CYSTIC FIBROSIS
     Dosage: UNK
     Route: 048

REACTIONS (10)
  - Hypoglycaemia [Unknown]
  - Insomnia [Unknown]
  - Arthropathy [Unknown]
  - Constipation [Unknown]
  - Mood altered [Unknown]
  - Abdominal pain [Unknown]
  - Depression [Unknown]
  - Weight increased [Unknown]
  - Drug interaction [Unknown]
  - Abnormal faeces [Unknown]
